FAERS Safety Report 9178364 (Version 3)
Quarter: 2013Q3

REPORT INFORMATION
  Report Type: Spontaneous
  Country: JP (occurrence: JP)
  Receive Date: 20130321
  Receipt Date: 20130918
  Transmission Date: 20140515
  Serious: Yes (Life-Threatening)
  Sender: FDA-Public Use
  Company Number: JP-ROCHE-1203562

PATIENT
  Age: 7 Decade
  Sex: Male

DRUGS (1)
  1. TAMIFLU [Suspect]
     Indication: INFLUENZA
     Dosage: THREE TIME ADMINISTRATION
     Route: 048
     Dates: start: 20130308, end: 20130309

REACTIONS (1)
  - Rhabdomyolysis [Not Recovered/Not Resolved]
